FAERS Safety Report 5696064-8 (Version None)
Quarter: 2008Q2

REPORT INFORMATION
  Report Type: 
  Country: None (occurrence: None)
  Receive Date: 20080407
  Receipt Date: 20080401
  Transmission Date: 20081010
  Serious: Yes (Hospitalization)
  Sender: FDA-Public Use
  Company Number: B0508473A

PATIENT
  Age: 92 Year
  Sex: Male

DRUGS (10)
  1. VALTREX [Suspect]
     Indication: HERPES ZOSTER
     Route: 048
     Dates: start: 20080211, end: 20080214
  2. THYRADIN S [Concomitant]
     Dosage: 100MG PER DAY
     Route: 048
     Dates: start: 20080304
  3. GASTER D [Concomitant]
     Dosage: 20MG PER DAY
     Route: 048
     Dates: start: 20080304
  4. CALCIUM LACTATE [Concomitant]
     Dosage: 6G PER DAY
     Route: 048
     Dates: start: 20080304
  5. CASODEX [Concomitant]
     Dosage: 80MG PER DAY
     Route: 048
     Dates: start: 20080304
  6. HARNAL [Concomitant]
     Dosage: .2MG PER DAY
     Route: 048
     Dates: start: 20080304
  7. ALOSENN [Concomitant]
     Dosage: .5G PER DAY
     Route: 048
     Dates: start: 20080304
  8. RHYTHMY [Concomitant]
     Dosage: 2MG PER DAY
     Route: 048
     Dates: start: 20080304
  9. CHINESE MEDICINE [Concomitant]
     Dosage: 5G PER DAY
     Route: 048
     Dates: start: 20080304
  10. GLYSENNID [Concomitant]
     Dosage: 24MG PER DAY
     Route: 048
     Dates: start: 20080304

REACTIONS (12)
  - BLOOD CREATININE INCREASED [None]
  - BLOOD LACTATE DEHYDROGENASE INCREASED [None]
  - BLOOD UREA INCREASED [None]
  - C-REACTIVE PROTEIN INCREASED [None]
  - DEPRESSED LEVEL OF CONSCIOUSNESS [None]
  - HAEMATOCRIT DECREASED [None]
  - HAEMOGLOBIN DECREASED [None]
  - LYMPHOCYTE COUNT DECREASED [None]
  - MENTAL DISORDER [None]
  - MONOCYTE COUNT INCREASED [None]
  - RED BLOOD CELL COUNT DECREASED [None]
  - TOXIC ENCEPHALOPATHY [None]
